FAERS Safety Report 6369985-0 (Version None)
Quarter: 2009Q3

REPORT INFORMATION
  Report Type: 
  Country: None (occurrence: None)
  Receive Date: 20090923
  Receipt Date: 20070430
  Transmission Date: 20100115
  Serious: Yes (Other)
  Sender: FDA-Public Use
  Company Number: US-ASTRAZENECA-2006UW08147

PATIENT
  Age: 21394 Day
  Sex: Female
  Weight: 81.6 kg

DRUGS (19)
  1. SEROQUEL [Suspect]
     Indication: TREMOR
     Route: 048
     Dates: start: 20041110, end: 20051101
  2. SEROQUEL [Suspect]
     Indication: PSYCHOTIC DISORDER
     Route: 048
     Dates: start: 20041110, end: 20051101
  3. SEROQUEL [Suspect]
     Indication: IRRITABILITY
     Route: 048
     Dates: start: 20041110, end: 20051101
  4. SEROQUEL [Suspect]
     Indication: SLEEP DISORDER
     Route: 048
     Dates: start: 20041110, end: 20051101
  5. SEROQUEL [Suspect]
     Dosage: 25 TO 300 MG
     Route: 048
     Dates: start: 20051111, end: 20070425
  6. SEROQUEL [Suspect]
     Dosage: 25 TO 300 MG
     Route: 048
     Dates: start: 20051111, end: 20070425
  7. SEROQUEL [Suspect]
     Dosage: 25 TO 300 MG
     Route: 048
     Dates: start: 20051111, end: 20070425
  8. SEROQUEL [Suspect]
     Dosage: 25 TO 300 MG
     Route: 048
     Dates: start: 20051111, end: 20070425
  9. RISPERDAL [Concomitant]
     Dates: start: 20060101
  10. RISPERDAL [Concomitant]
     Route: 048
  11. DEPAKOTE [Concomitant]
     Route: 048
  12. HALDOL [Concomitant]
     Dosage: 5 MG TO 20 MG
  13. COGENTIN [Concomitant]
     Route: 048
  14. ESKALITH CR [Concomitant]
     Dosage: 300 TO 900 MG
     Route: 048
  15. NOVOLIN R [Concomitant]
  16. AMBIEN [Concomitant]
     Route: 048
  17. ZYPREXA [Concomitant]
     Indication: MANIA
     Route: 048
     Dates: end: 20051112
  18. GLUCOPHAGE [Concomitant]
     Route: 048
  19. ATIVAN [Concomitant]
     Indication: MANIA
     Route: 048

REACTIONS (3)
  - DIABETIC COMA [None]
  - HYPERGLYCAEMIA [None]
  - TYPE 2 DIABETES MELLITUS [None]
